FAERS Safety Report 5012472-2 (Version None)
Quarter: 2006Q2

REPORT INFORMATION
  Report Type: 
  Country: None (occurrence: None)
  Receive Date: 20060410
  Receipt Date: 20051212
  Transmission Date: 20061013
  Serious: Yes (Hospitalization)
  Sender: FDA-Public Use
  Company Number: 05P-163-0319189-00

PATIENT
  Sex: Female

DRUGS (10)
  1. DEPAKOTE [Suspect]
     Indication: CONVULSION
     Dosage: 250 MG, 3 IN 1 D, PER ORAL; SEE IMAGE
     Route: 048
     Dates: end: 20051206
  2. DEPAKOTE [Suspect]
     Indication: CONVULSION
     Dosage: 250 MG, 3 IN 1 D, PER ORAL; SEE IMAGE
     Route: 048
     Dates: start: 20051206
  3. GLIPIZIDE [Concomitant]
  4. METFORMIN HYDROCHLORIDE [Concomitant]
  5. ACTOS [Concomitant]
  6. MIRAPEX [Concomitant]
  7. FUROSEMIDE [Concomitant]
  8. SINEMET [Concomitant]
  9. CLOPIDOGREL BISULFATE [Concomitant]
  10. ATORVASTATIN CALCIUM [Concomitant]

REACTIONS (3)
  - DRUG LEVEL DECREASED [None]
  - UNEVALUABLE EVENT [None]
  - VOMITING [None]
